FAERS Safety Report 9721702 (Version 4)
Quarter: 2014Q2

REPORT INFORMATION
  Report Type: Spontaneous
  Country: US (occurrence: US)
  Receive Date: 20131201
  Receipt Date: 20140429
  Transmission Date: 20141212
  Serious: No
  Sender: FDA-Public Use
  Company Number: US-ABBVIE-13P-163-1153267-00

PATIENT
  Age: 35 Year
  Sex: Male
  Weight: 55.84 kg

DRUGS (2)
  1. ANDROGEL 1.62% [Suspect]
     Indication: BLOOD TESTOSTERONE DECREASED
     Dosage: TWO PUMS
     Route: 061
     Dates: start: 20130915, end: 20130918
  2. FINASTERIDE [Concomitant]
     Indication: ALOPECIA

REACTIONS (9)
  - Chills [Recovered/Resolved]
  - Nausea [Recovered/Resolved]
  - Chills [Recovered/Resolved]
  - Hyperhidrosis [Recovered/Resolved]
  - Dizziness [Not Recovered/Not Resolved]
  - Acne [Not Recovered/Not Resolved]
  - Suicidal ideation [Not Recovered/Not Resolved]
  - Paranoia [Not Recovered/Not Resolved]
  - Asthenia [Not Recovered/Not Resolved]
